FAERS Safety Report 7698698-8 (Version None)
Quarter: 2011Q3

REPORT INFORMATION
  Report Type: 
  Country: None (occurrence: None)
  Receive Date: 20110819
  Receipt Date: 20110809
  Transmission Date: 20111222
  Serious: Yes (Hospitalization, Other)
  Sender: FDA-Public Use
  Company Number: US-BAYER-201020521NA

PATIENT
  Age: 29 Year
  Sex: Female
  Weight: 108 kg

DRUGS (3)
  1. YASMIN [Suspect]
     Indication: PRODUCT USED FOR UNKNOWN INDICATION
     Dosage: UNK
     Dates: start: 20040301, end: 20061201
  2. CHANTIX [Concomitant]
     Indication: EX-TOBACCO USER
     Dates: start: 20080409
  3. YAZ [Suspect]
     Indication: PRODUCT USED FOR UNKNOWN INDICATION
     Route: 048
     Dates: start: 20071001, end: 20080409

REACTIONS (10)
  - ISCHAEMIC STROKE [None]
  - SPEECH DISORDER [None]
  - COGNITIVE DISORDER [None]
  - MUSCULAR WEAKNESS [None]
  - DYSARTHRIA [None]
  - HYPOAESTHESIA [None]
  - VIITH NERVE PARALYSIS [None]
  - FACIAL PARESIS [None]
  - GRIP STRENGTH DECREASED [None]
  - HYPOREFLEXIA [None]
